FAERS Safety Report 24951948 (Version 1)
Quarter: 2025Q1

REPORT INFORMATION
  Report Type: Spontaneous
  Country: US (occurrence: None)
  Receive Date: 20250207
  Receipt Date: 20250207
  Transmission Date: 20250409
  Serious: Yes (Hospitalization)
  Sender: FDA-CTU
  Company Number: None

PATIENT
  Age: 76 Year
  Sex: Female
  Weight: 56.9 kg

DRUGS (1)
  1. ALPELISIB [Suspect]
     Active Substance: ALPELISIB
     Indication: Breast cancer
     Dosage: FREQUENCY : DAILY;?
     Route: 048
     Dates: start: 20240904, end: 20241013

REACTIONS (5)
  - Asthenia [None]
  - Lethargy [None]
  - Diarrhoea [None]
  - Blood pressure systolic decreased [None]
  - Type 2 diabetes mellitus [None]

NARRATIVE: CASE EVENT DATE: 20241014
